FAERS Safety Report 5164016-2 (Version None)
Quarter: 2006Q4

REPORT INFORMATION
  Report Type: 
  Country: None (occurrence: None)
  Receive Date: 20061204
  Receipt Date: 20061129
  Transmission Date: 20070319
  Serious: Yes (Hospitalization)
  Sender: FDA-Public Use
  Company Number: ES-BOEHRINGER INGELHEIM PHARMACEUTICALS, INC.-2006-ES-00382ES

PATIENT
  Sex: Male
  Weight: 71 kg

DRUGS (1)
  1. APTIVUS [Suspect]
     Indication: HIV INFECTION
     Dosage: 1000 MG TIPRANAVIR + 400 MG NORVIR
     Route: 048
     Dates: start: 20060310

REACTIONS (1)
  - ASTHMA [None]
